FAERS Safety Report 10415379 (Version 1)
Quarter: 2014Q3

REPORT INFORMATION
  Report Type: Spontaneous
  Country: US (occurrence: None)
  Receive Date: 20140826
  Receipt Date: 20140826
  Transmission Date: 20150326
  Serious: Yes (Hospitalization)
  Sender: FDA-Public Use
  Company Number: US-ZYDUS-004140

PATIENT
  Age: 13 Year
  Sex: Female

DRUGS (5)
  1. BUPROPION [Suspect]
     Active Substance: BUPROPION
  2. NAPROXEN. [Suspect]
     Active Substance: NAPROXEN
  3. CITALOPRAM [Suspect]
     Active Substance: CITALOPRAM HYDROBROMIDE
  4. PARACETAMOL [Suspect]
     Active Substance: ACETAMINOPHEN
  5. DIPHENHYDRAMINE [Suspect]
     Active Substance: DIPHENHYDRAMINE

REACTIONS (24)
  - Hypertension [None]
  - Abnormal behaviour [None]
  - Hyperthermia [None]
  - Gastrointestinal sounds abnormal [None]
  - Disorientation [None]
  - Serotonin syndrome [None]
  - Adrenergic syndrome [None]
  - Agitation [None]
  - Mydriasis [None]
  - Flushing [None]
  - Sinus tachycardia [None]
  - Electrocardiogram QT prolonged [None]
  - Myoclonus [None]
  - Muscle rigidity [None]
  - Dry skin [None]
  - Tachycardia [None]
  - Tachypnoea [None]
  - Anxiety [None]
  - Toxicity to various agents [None]
  - Intentional overdose [None]
  - Hallucination [None]
  - Mucosal dryness [None]
  - Urinary retention [None]
  - Tremor [None]
